FAERS Safety Report 5508908-0 (Version None)
Quarter: 2007Q4

REPORT INFORMATION
  Report Type: 
  Country: None (occurrence: None)
  Receive Date: 20071107
  Receipt Date: 20071026
  Transmission Date: 20080405
  Serious: Yes (Hospitalization)
  Sender: FDA-Public Use
  Company Number: GB-ROCHE-526273

PATIENT
  Age: 52 Year
  Sex: Male
  Weight: 60 kg

DRUGS (6)
  1. XELODA [Suspect]
     Indication: DRUG USE FOR UNKNOWN INDICATION
     Route: 048
     Dates: start: 20070731, end: 20070917
  2. STEROID NOS [Concomitant]
  3. METOCLOPRAMIDE [Concomitant]
  4. EPIRUBICIN [Concomitant]
     Route: 042
     Dates: start: 20070731, end: 20070911
  5. CISPLATIN [Concomitant]
     Route: 042
     Dates: start: 20070731, end: 20070911
  6. NOZINAN [Concomitant]
     Indication: ANTIEMETIC SUPPORTIVE CARE
     Route: 048
     Dates: start: 20070821, end: 20070907

REACTIONS (5)
  - AMNESIA [None]
  - CONFUSIONAL STATE [None]
  - DISORIENTATION [None]
  - ENCEPHALOPATHY [None]
  - PERSONALITY CHANGE [None]
